FAERS Safety Report 9237216 (Version 2)
Quarter: 2013Q2

REPORT INFORMATION
  Report Type: Spontaneous
  Country: JP (occurrence: JP)
  Receive Date: 20130417
  Receipt Date: 20130508
  Transmission Date: 20140414
  Serious: Yes (Hospitalization, Other)
  Sender: FDA-Public Use
  Company Number: JP-ACTAVIS-2013-06354

PATIENT
  Age: 69 Year
  Sex: Female
  Weight: 50 kg

DRUGS (1)
  1. ANASTROZOLE (UNKNOWN) [Suspect]
     Indication: BREAST CANCER
     Dosage: 1 MG, DAILY
     Route: 048

REACTIONS (3)
  - Glomerulonephritis rapidly progressive [Recovering/Resolving]
  - Renal failure acute [Recovering/Resolving]
  - Vasculitis [Unknown]
